FAERS Safety Report 4815501-1 (Version None)
Quarter: 2005Q4

REPORT INFORMATION
  Report Type: 
  Country: None (occurrence: None)
  Receive Date: 20051027
  Receipt Date: 20051011
  Transmission Date: 20060501
  Serious: Yes (Other)
  Sender: FDA-Public Use
  Company Number: GBWYE047412OCT05

PATIENT
  Sex: Female

DRUGS (1)
  1. DIAMOX [Suspect]
     Indication: BENIGN INTRACRANIAL HYPERTENSION
     Dosage: MOSTLY 250 MG/DAY, FREQUENCY UNKNOWN; SEE IMAGE

REACTIONS (8)
  - BLOOD PRESSURE SYSTOLIC ABNORMAL [None]
  - CALCINOSIS [None]
  - CONVULSION [None]
  - CSF PRESSURE INCREASED [None]
  - HEADACHE [None]
  - NEPHROLITHIASIS [None]
  - POSTICTAL STATE [None]
  - RENAL COLIC [None]
